FAERS Safety Report 6645955-X (Version None)
Quarter: 2010Q1

REPORT INFORMATION
  Report Type: 
  Country: None (occurrence: None)
  Receive Date: 20100323
  Receipt Date: 20100323
  Transmission Date: 20100710
  Serious: Yes (Hospitalization)
  Sender: FDA-Public Use
  Company Number: PHHO2006HU18387

PATIENT
  Sex: Female
  Weight: 70 kg

DRUGS (10)
  1. ACLASTA/ZOLEDRONATE T29581+A+SOLINJ [Suspect]
     Indication: OSTEOPOROSIS POSTMENOPAUSAL
     Dosage: 5 MG ONCE A YEAR
     Route: 042
     Dates: start: 20050927
  2. CALCIUM [Concomitant]
     Indication: OSTEOPOROSIS POSTMENOPAUSAL
  3. VITAMIN D [Concomitant]
     Indication: OSTEOPOROSIS POSTMENOPAUSAL
  4. RENITEC [Concomitant]
     Indication: HYPERTENSION
     Dates: start: 19900101
  5. CO-RENITEN [Concomitant]
     Indication: HYPERTENSION
  6. CARDURA [Concomitant]
     Indication: HYPERTENSION
  7. DILATREND [Concomitant]
     Indication: HYPERTENSION
     Dates: start: 20060201
  8. AMLODIPINE [Concomitant]
     Indication: HYPERTENSION
  9. INSULIN [Concomitant]
     Indication: DIABETES MELLITUS
     Dates: start: 20000101
  10. FRAXIPARINE [Suspect]

REACTIONS (3)
  - ARTHRALGIA [None]
  - ARTHRITIS [None]
  - ARTHROSCOPY [None]
